FAERS Safety Report 7523525-9 (Version None)
Quarter: 2011Q2

REPORT INFORMATION
  Report Type: 
  Country: None (occurrence: None)
  Receive Date: 20110601
  Receipt Date: 20110601
  Transmission Date: 20111010
  Serious: Yes (Disabling)
  Sender: FDA-Public Use
  Company Number: None

PATIENT
  Sex: Male
  Weight: 63.5036 kg

DRUGS (1)
  1. CIPROFLOXACIN [Suspect]
     Indication: URINARY TRACT INFECTION
     Dosage: 500MG 2XDAY MOUTH
     Route: 048
     Dates: start: 20091001

REACTIONS (11)
  - MUSCLE DISORDER [None]
  - HEARING IMPAIRED [None]
  - TENDON DISORDER [None]
  - HAIR DISORDER [None]
  - NAIL DISORDER [None]
  - ABASIA [None]
  - ARTHROPATHY [None]
  - IMPAIRED WORK ABILITY [None]
  - TOOTH DISORDER [None]
  - VISUAL IMPAIRMENT [None]
  - SKIN DISORDER [None]
